FAERS Safety Report 15861734 (Version 1)
Quarter: 2019Q1

REPORT INFORMATION
  Report Type: Spontaneous
  Country: US (occurrence: US)
  Receive Date: 20190124
  Receipt Date: 20190124
  Transmission Date: 20190417
  Serious: No
  Sender: FDA-Public Use
  Company Number: US-DENTSPLY PHARMACEUTICAL-2017SCDP000144

PATIENT
  Sex: Female

DRUGS (1)
  1. ORAQIX [Suspect]
     Active Substance: LIDOCAINE\PRILOCAINE
     Indication: LOCAL ANAESTHESIA
     Dosage: 1.70 G, 20PK
     Route: 061

REACTIONS (1)
  - Application site vesicles [None]

NARRATIVE: CASE EVENT DATE: 20171216
